FAERS Safety Report 13444858 (Version 20)
Quarter: 2019Q4

REPORT INFORMATION
  Report Type: Report from Study
  Country: RO (occurrence: RO)
  Receive Date: 20170414
  Receipt Date: 20191231
  Transmission Date: 20200122
  Serious: Yes (Death, Hospitalization, Congenital Anomaly, Other)
  Sender: FDA-Public Use
  Company Number: PHHY2017RO054839

PATIENT
  Age: 16 Year
  Sex: Female
  Weight: 55 kg

DRUGS (12)
  1. CIPROFLOXACINE [Concomitant]
     Active Substance: CIPROFLOXACIN
     Indication: PRODUCT USED FOR UNKNOWN INDICATION
     Dosage: 750 MG, UNK
     Route: 065
     Dates: start: 20161026, end: 20161113
  2. 6-MERCAPTOPURINE MONOHYDRATE [Concomitant]
     Active Substance: MERCAPTOPURINE
     Dosage: 87.5 MG, UNK
     Route: 065
     Dates: start: 20161115, end: 20161127
  3. PIPERACILLIN/TAZOBACTAM [Concomitant]
     Active Substance: PIPERACILLIN SODIUM\TAZOBACTAM SODIUM
     Indication: BACTERIAL DISEASE CARRIER
     Dosage: 4 G/ 0,5 G
     Route: 065
     Dates: start: 20161113, end: 20161124
  4. CYCLOPHOSPHAMIDE. [Concomitant]
     Active Substance: CYCLOPHOSPHAMIDE
     Indication: CHEMOTHERAPY
     Dosage: 1450 MG, UNK
     Route: 065
     Dates: start: 20161026, end: 20161202
  5. FLUCONAZOL [Concomitant]
     Active Substance: FLUCONAZOLE
     Indication: PRODUCT USED FOR UNKNOWN INDICATION
     Dosage: 300 MG, UNK
     Route: 065
     Dates: start: 20161026, end: 20161127
  6. COLISTIN//COLISTIMETHATE SODIUM [Concomitant]
     Indication: BACTERIAL DISEASE CARRIER
     Dosage: 6 MILLION, IU
     Route: 065
     Dates: start: 20161114, end: 20161123
  7. GLIVEC [Suspect]
     Active Substance: IMATINIB MESYLATE
     Indication: ACUTE LYMPHOCYTIC LEUKAEMIA
     Dosage: 340 MG, BID
     Route: 048
     Dates: start: 20161010, end: 20161110
  8. METRONIDAZOL [Concomitant]
     Active Substance: METRONIDAZOLE
     Indication: PRODUCT USED FOR UNKNOWN INDICATION
     Dosage: 750 MG, UNK
     Route: 065
     Dates: start: 20161026, end: 20161127
  9. 6-MERCAPTOPURINE MONOHYDRATE [Concomitant]
     Active Substance: MERCAPTOPURINE
     Indication: CHEMOTHERAPY
     Dosage: 87.5 MG, UNK
     Route: 065
     Dates: start: 20161026, end: 20161110
  10. CYTARABINUM [Concomitant]
     Active Substance: CYTARABINE
     Indication: CHEMOTHERAPY
     Dosage: 110 MG, UNK
     Route: 065
     Dates: start: 20161028, end: 20161127
  11. URSODEOXYCHOLIC ACID [Concomitant]
     Active Substance: URSODIOL
     Indication: BLOOD BILIRUBIN INCREASED
     Dosage: 750 MG, UNK
     Route: 065
     Dates: start: 20161112, end: 20161124
  12. MESNA. [Concomitant]
     Active Substance: MESNA
     Indication: CHEMOTHERAPY
     Dosage: 1800 MG, UNK
     Route: 065
     Dates: start: 20161026, end: 20161203

REACTIONS (17)
  - Stomatitis [Unknown]
  - Anaemia [Recovered/Resolved]
  - Productive cough [Recovered/Resolved]
  - Dyspnoea [Recovered/Resolved]
  - Neutropenia [Recovered/Resolved]
  - Gastrointestinal infection [Recovered/Resolved]
  - Chronic graft versus host disease [Fatal]
  - Vomiting [Recovered/Resolved]
  - Pneumonia [Recovered/Resolved]
  - Thrombocytopenia [Recovered/Resolved]
  - Cardiac arrest [Fatal]
  - Nausea [Recovered/Resolved]
  - Klebsiella infection [Recovered/Resolved]
  - Cardiogenic shock [Fatal]
  - Muscle contractions involuntary [Recovered/Resolved]
  - Face oedema [Recovered/Resolved]
  - Blood bilirubin increased [Recovered/Resolved]

NARRATIVE: CASE EVENT DATE: 20161026
